FAERS Safety Report 5545818-7 (Version None)
Quarter: 2007Q4

REPORT INFORMATION
  Report Type: 
  Country: None (occurrence: None)
  Receive Date: 20071211
  Receipt Date: 20070910
  Transmission Date: 20080405
  Serious: No
  Sender: FDA-Public Use
  Company Number: US-ASTRAZENECA-2007UW21303

PATIENT
  Age: 67 Year
  Sex: Female

DRUGS (4)
  1. SYMBICORT [Suspect]
     Indication: CHRONIC OBSTRUCTIVE PULMONARY DISEASE
     Dosage: 160/4.5 MCG
     Route: 055
  2. ADVAIR DISKUS 100/50 [Concomitant]
     Dosage: 250/50
  3. COMBIVENT [Concomitant]
     Dosage: SEVERAL TIMES A DAY
     Route: 055
  4. SPIRIVA [Concomitant]

REACTIONS (1)
  - DYSPNOEA [None]
